FAERS Safety Report 7948304-X (Version None)
Quarter: 2011Q4

REPORT INFORMATION
  Report Type: 
  Country: None (occurrence: None)
  Receive Date: 20111130
  Receipt Date: 20111125
  Transmission Date: 20120403
  Serious: No
  Sender: FDA-Public Use
  Company Number: US-PFIZER INC-2011288560

PATIENT
  Sex: Female
  Weight: 83.9 kg

DRUGS (3)
  1. FLECTOR [Suspect]
     Indication: INTERVERTEBRAL DISC PROTRUSION
     Dosage: UNK
  2. CYMBALTA [Concomitant]
     Indication: DEPRESSION
     Dosage: 60 MG, 2X/DAY
  3. CYMBALTA [Concomitant]
     Indication: PAIN

REACTIONS (3)
  - SKIN IRRITATION [None]
  - DRUG INEFFECTIVE [None]
  - INSOMNIA [None]
